FAERS Safety Report 5094980-1 (Version None)
Quarter: 2006Q3

REPORT INFORMATION
  Report Type: 
  Country: None (occurrence: None)
  Receive Date: 20060728
  Receipt Date: 20060329
  Transmission Date: 20061208
  Serious: No
  Sender: FDA-Public Use
  Company Number: COT_0507_2006

PATIENT
  Age: 43 Year
  Sex: Female
  Weight: 63.5036 kg

DRUGS (16)
  1. VENTAVIS [Suspect]
     Indication: PULMONARY HYPERTENSION
     Dosage: 5 MCG 4- 6X/DAY IH
     Route: 055
     Dates: start: 20051222
  2. PLO-GEL FORMULA C [Concomitant]
  3. REMODULIN [Concomitant]
  4. SILDENAFIL [Concomitant]
  5. TRACLEER [Concomitant]
  6. COUMADIN [Concomitant]
  7. PRILOSEC [Concomitant]
  8. KETOPROFEN [Concomitant]
  9. LIDOCAINE [Concomitant]
  10. NEURONTIN [Concomitant]
  11. KETAMINE HCL [Concomitant]
  12. AMITRIPTYLINE HYDROCHLORIDE [Concomitant]
  13. IRON [Concomitant]
  14. ZITHROMAX [Concomitant]
  15. TRAMADOL HYDROCHLORIDE [Concomitant]
  16. DARVOCET [Concomitant]

REACTIONS (5)
  - COUGH [None]
  - DYSPHONIA [None]
  - GLOSSODYNIA [None]
  - HEADACHE [None]
  - PHARYNGOLARYNGEAL PAIN [None]
